FAERS Safety Report 16573794 (Version 5)
Quarter: 2020Q1

REPORT INFORMATION
  Report Type: Report from Study
  Country: None (occurrence: IL)
  Receive Date: 20190715
  Receipt Date: 20200326
  Transmission Date: 20200409
  Serious: Yes (Hospitalization)
  Sender: FDA-Public Use
  Company Number: IL-ABBVIE-19K-082-2846942-00

PATIENT
  Age: 72 Year
  Sex: Female
  Weight: 100 kg

DRUGS (19)
  1. ALLOPURINOL. [Concomitant]
     Active Substance: ALLOPURINOL
     Indication: PROPHYLAXIS
     Dates: start: 20190521, end: 20190619
  2. ENOXAPARIN SODIUM. [Concomitant]
     Active Substance: ENOXAPARIN SODIUM
     Indication: ATRIAL FIBRILLATION
     Dates: start: 201811
  3. RITUXIMAB. [Suspect]
     Active Substance: RITUXIMAB
     Dosage: CYCLE 5
     Route: 065
     Dates: start: 20191010, end: 20191010
  4. ROSUVASTATIN. [Concomitant]
     Active Substance: ROSUVASTATIN
     Indication: DYSLIPIDAEMIA
     Dates: start: 2009
  5. VENETOCLAX. [Suspect]
     Active Substance: VENETOCLAX
     Route: 048
     Dates: start: 20190528, end: 20190603
  6. VENETOCLAX. [Suspect]
     Active Substance: VENETOCLAX
     Route: 048
     Dates: start: 20190611, end: 20190618
  7. VENETOCLAX. [Suspect]
     Active Substance: VENETOCLAX
     Indication: CHRONIC LYMPHOCYTIC LEUKAEMIA
     Route: 048
     Dates: start: 20190521, end: 20190527
  8. RITUXIMAB. [Suspect]
     Active Substance: RITUXIMAB
     Indication: B-LYMPHOCYTE COUNT INCREASED
     Dosage: CYCLE 2
     Route: 065
     Dates: start: 20190717, end: 20190717
  9. RITUXIMAB. [Suspect]
     Active Substance: RITUXIMAB
     Dosage: CYCLE 3
     Route: 065
     Dates: start: 20190814, end: 20190814
  10. CANDESARTAN PLUS [Concomitant]
     Active Substance: CANDESARTAN CILEXETIL\HYDROCHLOROTHIAZIDE
     Indication: HYPERTENSION
     Dates: start: 2015
  11. RITUXIMAB. [Suspect]
     Active Substance: RITUXIMAB
     Dosage: CYCLE 4
     Route: 065
     Dates: start: 20190911, end: 20190911
  12. LORATADINE. [Concomitant]
     Active Substance: LORATADINE
     Indication: PREMEDICATION
     Dates: start: 20190619
  13. RITUXIMAB. [Suspect]
     Active Substance: RITUXIMAB
     Dosage: CYCLE 6
     Route: 065
     Dates: start: 20191114, end: 20191114
  14. LERCANIDIPINE HYDROCHLORIDE [Concomitant]
     Active Substance: LERCANIDIPINE HYDROCHLORIDE
     Indication: HYPERTENSION
     Dates: start: 2015
  15. BISOPROLOL FUMARATE. [Concomitant]
     Active Substance: BISOPROLOL FUMARATE
     Indication: HYPERTENSION
     Dates: start: 2015
  16. VENETOCLAX. [Suspect]
     Active Substance: VENETOCLAX
     Route: 048
     Dates: start: 20190604, end: 20190610
  17. VENETOCLAX. [Suspect]
     Active Substance: VENETOCLAX
     Route: 048
     Dates: start: 20190619
  18. PARACETAMOL [Concomitant]
     Active Substance: ACETAMINOPHEN
     Indication: PREMEDICATION
     Dates: start: 20190619
  19. HYDROCORTISONE. [Concomitant]
     Active Substance: HYDROCORTISONE
     Indication: PREMEDICATION
     Dates: start: 20190619

REACTIONS (11)
  - Pain in extremity [Recovered/Resolved]
  - Wheezing [Recovered/Resolved]
  - Chronic gastritis [Not Recovered/Not Resolved]
  - Staphylococcal sepsis [Recovered/Resolved]
  - Large intestine polyp [Not Recovered/Not Resolved]
  - Oedema peripheral [Recovered/Resolved]
  - Atrial fibrillation [Recovered/Resolved]
  - Arthritis bacterial [Recovered/Resolved]
  - Pyrexia [Recovered/Resolved]
  - Iron deficiency [Recovered/Resolved]
  - Chills [Recovered/Resolved]

NARRATIVE: CASE EVENT DATE: 20190526
